FAERS Safety Report 7449787-4 (Version None)
Quarter: 2011Q2

REPORT INFORMATION
  Report Type: 
  Country: None (occurrence: None)
  Receive Date: 20110421
  Receipt Date: 20110406
  Transmission Date: 20111010
  Serious: Yes (Hospitalization, Other)
  Sender: FDA-Public Use
  Company Number: NSR_00218_2011

PATIENT
  Sex: Male

DRUGS (1)
  1. TRAMADOL HCL [Suspect]
     Indication: PRODUCT USED FOR UNKNOWN INDICATION
     Dosage: 600-800MG DAILY, INTRA-UTERINE
     Route: 015

REACTIONS (10)
  - AGITATION NEONATAL [None]
  - MYOCLONUS [None]
  - PREMATURE BABY [None]
  - FEEDING DISORDER NEONATAL [None]
  - STREPTOCOCCAL INFECTION [None]
  - CHLAMYDIAL INFECTION [None]
  - DRUG WITHDRAWAL SYNDROME NEONATAL [None]
  - MATERNAL DRUGS AFFECTING FOETUS [None]
  - IRRITABILITY [None]
  - FREQUENT BOWEL MOVEMENTS [None]
